FAERS Safety Report 8540857-6 (Version None)
Quarter: 2012Q2

REPORT INFORMATION
  Report Type: 
  Country: None (occurrence: None)
  Receive Date: 20120412
  Receipt Date: 20090309
  Transmission Date: 20120825
  Serious: Yes (Other)
  Sender: FDA-Public Use
  Company Number: PHEH2009US02400

PATIENT
  Sex: Female

DRUGS (3)
  1. PAMIDRONATE DISODIUM [Suspect]
  2. ZOMETA [Suspect]
  3. AREDIA [Suspect]

REACTIONS (7)
  - INFECTION [None]
  - PHYSICAL DISABILITY [None]
  - EMOTIONAL DISTRESS [None]
  - PAIN [None]
  - ANXIETY [None]
  - DEFORMITY [None]
  - OSTEONECROSIS [None]
